FAERS Safety Report 6554685-4 (Version None)
Quarter: 2010Q1

REPORT INFORMATION
  Report Type: 
  Country: None (occurrence: None)
  Receive Date: 20100127
  Receipt Date: 20100119
  Transmission Date: 20100710
  Serious: Yes (Hospitalization)
  Sender: FDA-Public Use
  Company Number: FR-WYE-G05371410

PATIENT
  Sex: Female

DRUGS (8)
  1. EFFEXOR [Suspect]
     Dosage: UNKNOWN
     Route: 048
     Dates: end: 20091002
  2. KARDEGIC [Concomitant]
     Dosage: UNKNOWN
  3. TRANSIPEG [Concomitant]
     Dosage: UNKNOWN
  4. FUROSEMIDE [Concomitant]
     Dosage: UNKNOWN
  5. SELOKEN [Concomitant]
     Dosage: UNKNOWN
  6. ALLOPURINOL [Concomitant]
     Dosage: UNKNOWN
  7. EBIXA [Suspect]
     Dosage: UNKNOWN
     Route: 048
     Dates: end: 20090927
  8. ZANIDIP [Concomitant]
     Dosage: UNKNOWN

REACTIONS (10)
  - CARDIAC FAILURE [None]
  - CONFUSIONAL STATE [None]
  - CONVULSION [None]
  - DISORIENTATION [None]
  - DYSKINESIA [None]
  - EYE MOVEMENT DISORDER [None]
  - GAZE PALSY [None]
  - MALAISE [None]
  - UNRESPONSIVE TO STIMULI [None]
  - URINARY TRACT INFECTION [None]
